FAERS Safety Report 9883748 (Version 2)
Quarter: 2014Q1

REPORT INFORMATION
  Report Type: Spontaneous
  Country: US (occurrence: US)
  Receive Date: 20140210
  Receipt Date: 20140306
  Transmission Date: 20141002
  Serious: Yes (Hospitalization, Other)
  Sender: FDA-Public Use
  Company Number: US-009507513-1402USA002423

PATIENT
  Age: 36 Year
  Sex: Female

DRUGS (4)
  1. DULERA [Suspect]
     Indication: ASTHMA
     Dosage: 2 PUFFS/ BID
     Route: 055
     Dates: start: 201202
  2. PREDNISONE [Concomitant]
     Route: 048
  3. SPIRIVA [Concomitant]
  4. COMBIVENT [Concomitant]

REACTIONS (4)
  - Sepsis [Recovering/Resolving]
  - Wheezing [Recovering/Resolving]
  - Dyspnoea [Unknown]
  - Product quality issue [Unknown]
